FAERS Safety Report 22003043 (Version 1)
Quarter: 2023Q1

REPORT INFORMATION
  Report Type: Spontaneous
  Country: JP (occurrence: JP)
  Receive Date: 20230217
  Receipt Date: 20230217
  Transmission Date: 20230418
  Serious: Yes (Hospitalization)
  Sender: FDA-Public Use
  Company Number: JP-BAYER-2023A012754

PATIENT
  Age: 9 Decade
  Sex: Female

DRUGS (2)
  1. RIVAROXABAN [Suspect]
     Active Substance: RIVAROXABAN
     Indication: Product used for unknown indication
     Dosage: DAILY DOSE 5 MG
     Route: 048
     Dates: start: 202210
  2. MOLIDUSTAT SODIUM [Suspect]
     Active Substance: MOLIDUSTAT SODIUM

REACTIONS (4)
  - Fracture [Unknown]
  - Fibrin D dimer increased [Unknown]
  - Incorrect dose administered [Unknown]
  - Wrong technique in product usage process [Unknown]
